FAERS Safety Report 24080753 (Version 2)
Quarter: 2024Q3

REPORT INFORMATION
  Report Type: Report from Study
  Country: BE (occurrence: BE)
  Receive Date: 20240711
  Receipt Date: 20240722
  Transmission Date: 20241017
  Serious: Yes (Other)
  Sender: DAIICHI
  Company Number: BE-AstraZeneca-2024A155441

PATIENT
  Sex: Female
  Weight: 64 kg

DRUGS (1)
  1. ENHERTU [Suspect]
     Active Substance: FAM-TRASTUZUMAB DERUXTECAN-NXKI
     Indication: Product used for unknown indication
     Dosage: 6.4 MG/KG, ONCE EVERY 3 WK
     Route: 042

REACTIONS (2)
  - Pulmonary toxicity [Unknown]
  - Off label use [Unknown]
